FAERS Safety Report 5269124-3 (Version None)
Quarter: 2007Q1

REPORT INFORMATION
  Report Type: 
  Country: None (occurrence: None)
  Receive Date: 20070319
  Receipt Date: 20070313
  Transmission Date: 20070707
  Serious: Yes (Life-Threatening, Hospitalization)
  Sender: FDA-Public Use
  Company Number: PHHO2007FR04792

PATIENT
  Age: 59 Year
  Sex: Female
  Weight: 68 kg

DRUGS (6)
  1. IMATINIB MESYLATE [Suspect]
     Indication: ACUTE LYMPHOCYTIC LEUKAEMIA
     Dosage: 400 MG, QD
     Route: 048
     Dates: start: 20070111, end: 20070124
  2. METHOTREXATE [Suspect]
     Dosage: 1600MG
     Route: 042
     Dates: start: 20070111, end: 20070111
  3. ARACYTINE [Suspect]
     Route: 042
     Dates: start: 20070112, end: 20070113
  4. NEUPOGEN [Concomitant]
  5. MOPRAL [Concomitant]
  6. LEVOTHYROXINE SODIUM [Concomitant]

REACTIONS (9)
  - AGRANULOCYTOSIS [None]
  - APLASIA [None]
  - ESCHERICHIA INFECTION [None]
  - HYPOTENSION [None]
  - PYREXIA [None]
  - RETROPERITONEAL HAEMATOMA [None]
  - SEPTIC SHOCK [None]
  - SHOCK HAEMORRHAGIC [None]
  - TACHYCARDIA [None]
